FAERS Safety Report 12315192 (Version 1)
Quarter: 2016Q2

REPORT INFORMATION
  Report Type: Spontaneous
  Country: US (occurrence: US)
  Receive Date: 20160428
  Receipt Date: 20160428
  Transmission Date: 20160815
  Serious: Yes (Hospitalization, Other)
  Sender: FDA-Public Use
  Company Number: US-DEPOMED, INC.-US-2016DEP009426

PATIENT

DRUGS (10)
  1. MACROBID                           /00984601/ [Concomitant]
     Indication: BLADDER DISORDER
     Dosage: 100 MG, QD
     Route: 048
  2. EFFEXOR [Concomitant]
     Active Substance: VENLAFAXINE HYDROCHLORIDE
     Indication: DEPRESSION
  3. EFFEXOR [Concomitant]
     Active Substance: VENLAFAXINE HYDROCHLORIDE
     Indication: ANXIETY
     Dosage: 75 MG, QID
     Route: 048
  4. GABAPENTIN. [Concomitant]
     Active Substance: GABAPENTIN
     Indication: NEURALGIA
     Dosage: 300 MG, QID
     Route: 048
     Dates: start: 2012
  5. NUCYNTA ER [Suspect]
     Active Substance: TAPENTADOL HYDROCHLORIDE
     Indication: PAIN
     Dosage: 150 MG, EVERY 12 HOURS
     Route: 048
     Dates: start: 2013
  6. FLOMAX [Concomitant]
     Active Substance: TAMSULOSIN HYDROCHLORIDE
     Indication: BLADDER DISORDER
     Dosage: 0.4 MG, QD
     Route: 048
  7. XANAX [Concomitant]
     Active Substance: ALPRAZOLAM
     Indication: PANIC ATTACK
     Dosage: 1 MG, QID PRN
     Route: 048
     Dates: start: 2001
  8. VITAMINS NOS [Concomitant]
     Active Substance: VITAMINS
     Indication: PRODUCT USED FOR UNKNOWN INDICATION
     Dosage: 1 DF, QD
     Route: 048
  9. ATARAX [Concomitant]
     Active Substance: HYDROXYZINE\HYDROXYZINE HYDROCHLORIDE
     Indication: CYSTITIS INTERSTITIAL
     Dosage: 25 MG, EVERY SIX HOURS PRN
     Route: 048
  10. DULCOLAX (BISACODYL) [Concomitant]
     Active Substance: BISACODYL
     Indication: PRODUCT USED FOR UNKNOWN INDICATION
     Dosage: UNK DF, QD
     Route: 048

REACTIONS (22)
  - Staphylococcal infection [Recovering/Resolving]
  - Dysstasia [Recovered/Resolved]
  - Depressed level of consciousness [Recovered/Resolved]
  - Depression [Recovering/Resolving]
  - Pain in extremity [Not Recovered/Not Resolved]
  - Incoherent [Recovered/Resolved]
  - Breast disorder female [Recovered/Resolved]
  - Septic shock [Recovering/Resolving]
  - Hallucination [Recovered/Resolved]
  - Skin mass [Not Recovered/Not Resolved]
  - Paralysis [Recovering/Resolving]
  - Tooth fracture [Recovered/Resolved]
  - Cystitis interstitial [Not Recovered/Not Resolved]
  - Ligament injury [Not Recovered/Not Resolved]
  - Memory impairment [Recovered/Resolved]
  - Soft tissue necrosis [Recovering/Resolving]
  - Peroneal nerve palsy [Not Recovered/Not Resolved]
  - Nerve injury [Not Recovered/Not Resolved]
  - Alopecia [Unknown]
  - Hypoaesthesia [Not Recovered/Not Resolved]
  - Visual impairment [Not Recovered/Not Resolved]
  - Condition aggravated [Not Recovered/Not Resolved]

NARRATIVE: CASE EVENT DATE: 2013
